FAERS Safety Report 4370279-3 (Version None)
Quarter: 2004Q2

REPORT INFORMATION
  Report Type: 
  Country: None (occurrence: None)
  Receive Date: 20040603
  Receipt Date: 20040405
  Transmission Date: 20050107
  Serious: No
  Sender: FDA-Public Use
  Company Number: US-BRISTOL-MYERS SQUIBB COMPANY-12550968

PATIENT
  Age: 41 Year
  Sex: Male
  Weight: 141 kg

DRUGS (8)
  1. ABILIFY [Suspect]
     Indication: GENERALISED ANXIETY DISORDER
     Route: 048
     Dates: start: 20030701
  2. ABILIFY [Suspect]
     Indication: SCHIZOPHRENIA
     Route: 048
     Dates: start: 20030701
  3. TENORMIN [Concomitant]
  4. DIAZID [Concomitant]
  5. PREVACID [Concomitant]
  6. PRINIVIL [Concomitant]
  7. ZYPREXA [Concomitant]
  8. XANAX [Concomitant]

REACTIONS (1)
  - AKATHISIA [None]
